FAERS Safety Report 14839190 (Version 2)
Quarter: 2018Q4

REPORT INFORMATION
  Report Type: Spontaneous
  Country: CA (occurrence: CA)
  Receive Date: 20180502
  Receipt Date: 20181115
  Transmission Date: 20190204
  Serious: Yes (Hospitalization, Other)
  Sender: FDA-Public Use
  Company Number: CA-PFIZER INC-2018133574

PATIENT
  Age: 51 Year
  Sex: Female

DRUGS (2)
  1. XELJANZ [Concomitant]
     Active Substance: TOFACITINIB CITRATE
     Indication: RHEUMATOID ARTHRITIS
     Dosage: 5 MG, 2X/DAY
     Route: 048
     Dates: start: 20180430
  2. METHOTREXATE SODIUM. [Suspect]
     Active Substance: METHOTREXATE SODIUM
     Indication: RHEUMATOID ARTHRITIS
     Dosage: 25 MG, WEEKLY
     Route: 058
     Dates: start: 201708

REACTIONS (24)
  - Loss of personal independence in daily activities [Not Recovered/Not Resolved]
  - Malaise [Not Recovered/Not Resolved]
  - Oxygen saturation decreased [Unknown]
  - Dizziness [Not Recovered/Not Resolved]
  - Alopecia [Unknown]
  - Nausea [Not Recovered/Not Resolved]
  - Asthenia [Not Recovered/Not Resolved]
  - Chest pain [Not Recovered/Not Resolved]
  - Pain [Unknown]
  - Thinking abnormal [Not Recovered/Not Resolved]
  - Insomnia [Not Recovered/Not Resolved]
  - Vascular fragility [Unknown]
  - Asthmatic crisis [Recovering/Resolving]
  - Dysgeusia [Not Recovered/Not Resolved]
  - Decreased immune responsiveness [Unknown]
  - Cough [Not Recovered/Not Resolved]
  - Feeling abnormal [Not Recovered/Not Resolved]
  - Osteoarthritis [Not Recovered/Not Resolved]
  - Poor venous access [Unknown]
  - Pyrexia [Recovered/Resolved]
  - Drug ineffective [Not Recovered/Not Resolved]
  - Pyrexia [Unknown]
  - Dyspnoea [Unknown]
  - Bronchitis [Not Recovered/Not Resolved]

NARRATIVE: CASE EVENT DATE: 20180319
